FAERS Safety Report 22044600 (Version 1)
Quarter: 2023Q1

REPORT INFORMATION
  Report Type: Spontaneous
  Country: US (occurrence: None)
  Receive Date: 20230227
  Receipt Date: 20230227
  Transmission Date: 20230418
  Serious: Yes (Other)
  Sender: FDA-Public Use
  Company Number: None

PATIENT
  Age: 67 Year
  Sex: Male
  Weight: 104.4 kg

DRUGS (7)
  1. AZELAIC ACID\IVERMECTIN\METRONIDAZOLE [Suspect]
     Active Substance: AZELAIC ACID\IVERMECTIN\METRONIDAZOLE
     Indication: Rosacea
     Dosage: FREQUENCY : DAILY;?
     Route: 061
     Dates: start: 20230220, end: 20230222
  2. Eloquist [Concomitant]
  3. Metoprolol ER succinctness [Concomitant]
  4. PRAVASTATIN [Concomitant]
     Active Substance: PRAVASTATIN
  5. TADALAFIL [Concomitant]
     Active Substance: TADALAFIL
  6. VITAMIN D NOS [Concomitant]
     Active Substance: VITAMIN D NOS
  7. Glucosamine triple strength [Concomitant]

REACTIONS (2)
  - Application site rash [None]
  - Rash pruritic [None]

NARRATIVE: CASE EVENT DATE: 20230222
